FAERS Safety Report 6000343-4 (Version None)
Quarter: 2008Q4

REPORT INFORMATION
  Report Type: 
  Country: None (occurrence: None)
  Receive Date: 20081215
  Receipt Date: 20081112
  Transmission Date: 20090506
  Serious: No
  Sender: FDA-Public Use
  Company Number: US-BAYER-200814750BCC

PATIENT
  Age: 43 Year
  Sex: Female
  Weight: 62 kg

DRUGS (3)
  1. ALEVE (CAPLET) [Suspect]
     Dosage: UNIT DOSE: 220 MG
     Dates: start: 20081111
  2. ALEVE (CAPLET) [Suspect]
     Dosage: UNIT DOSE: 220 MG
     Dates: start: 20081112
  3. FLONASE [Concomitant]

REACTIONS (1)
  - NO ADVERSE EVENT [None]
